FAERS Safety Report 8798076 (Version 1)
Quarter: 2012Q4

REPORT INFORMATION
  Report Type: Spontaneous
  Country: US (occurrence: None)
  Receive Date: 20120913
  Receipt Date: 20120913
  Transmission Date: 20130627
  Serious: Yes (Death)
  Sender: FDA-Public Use
  Company Number: TPA2012A06173

PATIENT
  Age: 56 Year
  Sex: Female
  Weight: 120.2 kg

DRUGS (1)
  1. ACTOS (PIOGLITAZONE HYDROCHLORIDE) [Suspect]
     Indication: TYPE II DIABETES MELLITUS
     Dosage: 1 IN 1 d
     Route: 048
     Dates: start: 20090915, end: 20110311

REACTIONS (3)
  - Lung cancer metastatic [None]
  - Metastases to central nervous system [None]
  - Malignant neoplasm progression [None]
